FAERS Safety Report 7174151-5 (Version None)
Quarter: 2010Q4

REPORT INFORMATION
  Report Type: 
  Country: None (occurrence: None)
  Receive Date: 20101219
  Receipt Date: 20100320
  Transmission Date: 20110411
  Serious: No
  Sender: FDA-Public Use
  Company Number: US-AMGEN-KDL401133

PATIENT

DRUGS (2)
  1. ENBREL [Suspect]
     Indication: PSORIATIC ARTHROPATHY
     Dosage: 50 MG, QWK
     Route: 058
     Dates: start: 20030201
  2. METHOTREXATE [Concomitant]
     Dosage: 2.5 MG, 3 TIMES/WK
     Dates: start: 20040207

REACTIONS (3)
  - ARTHRALGIA [None]
  - BACK PAIN [None]
  - UPPER RESPIRATORY TRACT INFECTION [None]
